FAERS Safety Report 12645203 (Version 5)
Quarter: 2016Q4

REPORT INFORMATION
  Report Type: Report from Study
  Country: BR (occurrence: BR)
  Receive Date: 20160811
  Receipt Date: 20161109
  Transmission Date: 20170207
  Serious: Yes (Death, Hospitalization, Other)
  Sender: FDA-Public Use
  Company Number: PHHY2015BR162350

PATIENT
  Age: 22 Year
  Sex: Male
  Weight: 40 kg

DRUGS (5)
  1. CALCIUM [Concomitant]
     Active Substance: CALCIUM
     Indication: RHEUMATIC DISORDER
     Dosage: 2 DF, QD
     Route: 048
  2. EXJADE [Suspect]
     Active Substance: DEFERASIROX
     Dosage: 4 DF, QD (4 TABLETS OF 500 MG)
     Route: 048
     Dates: start: 2014
  3. EXJADE [Suspect]
     Active Substance: DEFERASIROX
     Indication: SICKLE CELL ANAEMIA
     Dosage: 15 MG/KG, QD (2 DF OF 500 MG)
     Route: 048
     Dates: start: 2014
  4. EXJADE [Suspect]
     Active Substance: DEFERASIROX
     Dosage: 30 MG/KG, QD (4 DF OF 500 MG (2000 MG) QD)
     Route: 048
     Dates: start: 201510, end: 201608
  5. FOLIC ACID. [Concomitant]
     Active Substance: FOLIC ACID
     Indication: SICKLE CELL ANAEMIA
     Dosage: 2 DF, QD
     Route: 048

REACTIONS (18)
  - Hypokinesia [Not Recovered/Not Resolved]
  - Headache [Not Recovered/Not Resolved]
  - Haemorrhagic stroke [Not Recovered/Not Resolved]
  - Cardiac disorder [Recovering/Resolving]
  - Unresponsive to stimuli [Not Recovered/Not Resolved]
  - Heart rate decreased [Recovering/Resolving]
  - Weight decreased [Unknown]
  - Cerebrovascular accident [Recovered/Resolved]
  - Respiratory arrest [Fatal]
  - Liver disorder [Unknown]
  - Retching [Recovering/Resolving]
  - Abasia [Not Recovered/Not Resolved]
  - Prosopagnosia [Not Recovered/Not Resolved]
  - Blood iron increased [Recovering/Resolving]
  - Cardiac arrest [Fatal]
  - Aphasia [Not Recovered/Not Resolved]
  - Asthenia [Recovering/Resolving]
  - Fatigue [Recovering/Resolving]

NARRATIVE: CASE EVENT DATE: 201510
